FAERS Safety Report 8732335 (Version 19)
Quarter: 2014Q1

REPORT INFORMATION
  Report Type: Spontaneous
  Country: US (occurrence: US)
  Receive Date: 20120820
  Receipt Date: 20140324
  Transmission Date: 20141002
  Serious: Yes (Hospitalization)
  Sender: FDA-Public Use
  Company Number: US-GLAXOSMITHKLINE-A0990055A

PATIENT
  Age: 60 Year
  Sex: Female

DRUGS (7)
  1. FLOLAN [Suspect]
     Indication: PULMONARY ARTERIAL HYPERTENSION
     Dosage: 40NGKM CONTINUOUS
     Route: 042
     Dates: start: 20100113
  2. GABAPENTIN [Suspect]
     Indication: PAIN
     Route: 065
  3. BANDAGE [Suspect]
     Route: 061
  4. ADCIRCA [Suspect]
     Indication: PRODUCT USED FOR UNKNOWN INDICATION
     Route: 065
  5. TYVASO [Suspect]
     Indication: PRODUCT USED FOR UNKNOWN INDICATION
     Route: 065
  6. TRACLEER [Concomitant]
  7. OXYGEN [Concomitant]

REACTIONS (39)
  - Respiratory distress [Unknown]
  - Pneumonia [Unknown]
  - Medical device complication [Unknown]
  - Nausea [Unknown]
  - Feeling abnormal [Unknown]
  - Fatigue [Not Recovered/Not Resolved]
  - Memory impairment [Unknown]
  - Device infusion issue [Unknown]
  - Scar [Unknown]
  - Weight decreased [Unknown]
  - Decreased appetite [Unknown]
  - Pain in jaw [Not Recovered/Not Resolved]
  - Back pain [Not Recovered/Not Resolved]
  - Dizziness [Not Recovered/Not Resolved]
  - Oedema [Not Recovered/Not Resolved]
  - Pain in extremity [Not Recovered/Not Resolved]
  - Arthralgia [Not Recovered/Not Resolved]
  - Dysgeusia [Not Recovered/Not Resolved]
  - Diarrhoea [Not Recovered/Not Resolved]
  - Dyspnoea [Not Recovered/Not Resolved]
  - Constipation [Not Recovered/Not Resolved]
  - Flushing [Not Recovered/Not Resolved]
  - Pain [Unknown]
  - Anxiety [Unknown]
  - Headache [Unknown]
  - Throat irritation [Unknown]
  - Painful respiration [Unknown]
  - Respiratory tract congestion [Unknown]
  - Cough [Unknown]
  - Cardiac failure [Unknown]
  - Chest discomfort [Unknown]
  - Chest pain [Unknown]
  - Confusional state [Unknown]
  - Sensation of foreign body [Recovered/Resolved]
  - Infusion site discomfort [Recovered/Resolved]
  - Drug administration error [Unknown]
  - Device leakage [Recovered/Resolved]
  - Drug ineffective [Unknown]
  - Device malfunction [Unknown]
